FAERS Safety Report 6473140-3 (Version None)
Quarter: 2009Q4

REPORT INFORMATION
  Report Type: 
  Country: None (occurrence: None)
  Receive Date: 20091204
  Receipt Date: 20080805
  Transmission Date: 20100525
  Serious: Yes (Death, Other)
  Sender: FDA-Public Use
  Company Number: JP-ELI_LILLY_AND_COMPANY-JP200807006185

PATIENT
  Sex: Male
  Weight: 47.1 kg

DRUGS (11)
  1. GEMZAR [Suspect]
     Indication: PLEURAL MESOTHELIOMA MALIGNANT
     Dosage: UNK, UNK
     Route: 042
     Dates: start: 20080404, end: 20080404
  2. CARBOPLATIN [Concomitant]
     Indication: PLEURAL MESOTHELIOMA MALIGNANT
     Dosage: UNK, UNK
     Route: 042
     Dates: start: 20080404, end: 20080404
  3. HUMALOG [Concomitant]
     Indication: DIABETES MELLITUS
     Dosage: 18 IU, DAILY (1/D)
     Route: 058
  4. ADALAT [Concomitant]
     Indication: HYPERTENSION
     Dosage: 40 MG, DAILY (1/D)
     Route: 048
  5. OMEPRAL [Concomitant]
     Indication: PROPHYLAXIS
     Dosage: 20 MG, DAILY (1/D)
     Route: 048
  6. NITROL [Concomitant]
     Indication: ANGINA PECTORIS
     Dosage: 40 MG, DAILY (1/D)
     Route: 048
  7. MAGMITT [Concomitant]
     Indication: CONSTIPATION
     Dosage: 990 MG, DAILY (1/D)
     Route: 048
  8. LOXONIN [Concomitant]
     Indication: CANCER PAIN
     Dosage: 180 MG, DAILY (1/D)
     Route: 048
  9. SELBEX [Concomitant]
     Indication: PROPHYLAXIS
     Dosage: 150 MG, DAILY (1/D)
     Route: 048
  10. ASPIRIN [Concomitant]
     Indication: ANGINA PECTORIS
     Dosage: 100 MG, DAILY (1/D)
     Route: 048
  11. PLAVIX [Concomitant]
     Indication: ANGINA PECTORIS
     Dosage: 75 MG, DAILY (1/D)
     Route: 048

REACTIONS (5)
  - ANAEMIA [None]
  - LYMPHANGIOSIS CARCINOMATOSA [None]
  - MALIGNANT NEOPLASM PROGRESSION [None]
  - PERICARDITIS [None]
  - THROMBOCYTOPENIA [None]
